FAERS Safety Report 11701521 (Version 1)
Quarter: 2015Q4

REPORT INFORMATION
  Report Type: Spontaneous
  Country: US (occurrence: US)
  Receive Date: 20151105
  Receipt Date: 20151105
  Transmission Date: 20160304
  Serious: Yes (Death)
  Sender: FDA-Public Use
  Company Number: US-PFIZER INC-2015368057

PATIENT
  Sex: Female

DRUGS (1)
  1. IBRANCE [Suspect]
     Active Substance: PALBOCICLIB
     Indication: BREAST CANCER
     Dosage: 125 MG, DAILY FOR 21 DAYS
     Route: 048
     Dates: start: 20150520, end: 20150702

REACTIONS (4)
  - Malaise [Unknown]
  - Fatigue [Unknown]
  - White blood cell count decreased [Unknown]
  - Infection [Fatal]

NARRATIVE: CASE EVENT DATE: 20150602
